FAERS Safety Report 7874934-X (Version None)
Quarter: 2011Q4

REPORT INFORMATION
  Report Type: 
  Country: None (occurrence: None)
  Receive Date: 20111003
  Receipt Date: 20110621
  Transmission Date: 20120403
  Serious: Yes (Hospitalization, Other)
  Sender: FDA-Public Use
  Company Number: 287248USA

PATIENT
  Sex: Male

DRUGS (1)
  1. VENLAFAXINE [Suspect]

REACTIONS (1)
  - CONVULSION [None]
